FAERS Safety Report 19149348 (Version 2)
Quarter: 2021Q2

REPORT INFORMATION
  Report Type: Report from Study
  Country: US (occurrence: US)
  Receive Date: 20210416
  Receipt Date: 20210505
  Transmission Date: 20210717
  Serious: No
  Sender: FDA-Public Use
  Company Number: US-SA-2021SA123384

PATIENT
  Sex: Female

DRUGS (8)
  1. DUPIXENT [Suspect]
     Active Substance: DUPILUMAB
     Indication: PERIODONTAL DISEASE
  2. AQUAPHOR (XIPAMIDE) [Concomitant]
     Active Substance: XIPAMIDE
  3. DUPIXENT [Suspect]
     Active Substance: DUPILUMAB
     Indication: DERMATITIS ATOPIC
  4. ESCITALOPRAM OXALATE. [Concomitant]
     Active Substance: ESCITALOPRAM OXALATE
  5. VASELINE [PARAFFIN] [Concomitant]
     Active Substance: PARAFFIN
  6. TACROLIMUS. [Concomitant]
     Active Substance: TACROLIMUS
  7. DUPIXENT [Suspect]
     Active Substance: DUPILUMAB
     Indication: ILLNESS
     Dosage: 300 MG, QOW
     Route: 058
     Dates: start: 20210316
  8. CLOBETASOL [Concomitant]
     Active Substance: CLOBETASOL
     Dosage: EMOLLIENT

REACTIONS (2)
  - Product use in unapproved indication [Unknown]
  - Oropharyngeal pain [Unknown]
